FAERS Safety Report 24422847 (Version 1)
Quarter: 2024Q4

REPORT INFORMATION
  Report Type: Spontaneous
  Country: ES (occurrence: None)
  Receive Date: 20241010
  Receipt Date: 20241010
  Transmission Date: 20250115
  Serious: Yes (Hospitalization)
  Sender: ORION
  Company Number: None

PATIENT
  Age: 67 Year
  Sex: Female

DRUGS (3)
  1. METHYLPREDNISOLONE [Interacting]
     Active Substance: METHYLPREDNISOLONE
     Indication: Colitis ulcerative
     Dates: start: 2023, end: 202406
  2. METHOTREXATE [Interacting]
     Active Substance: METHOTREXATE
     Indication: Colitis ulcerative
     Dates: start: 202207, end: 202406
  3. INFLIXIMAB [Interacting]
     Active Substance: INFLIXIMAB
     Indication: Colitis ulcerative
     Dates: start: 2022, end: 202406

REACTIONS (4)
  - Drug interaction [Unknown]
  - Septic shock [Recovered/Resolved]
  - Abdominal infection [Recovered/Resolved]
  - Product use in unapproved indication [Unknown]

NARRATIVE: CASE EVENT DATE: 20220701
